FAERS Safety Report 7190745-5 (Version None)
Quarter: 2010Q4

REPORT INFORMATION
  Report Type: 
  Country: None (occurrence: None)
  Receive Date: 20101223
  Receipt Date: 20101217
  Transmission Date: 20110411
  Serious: Yes (Death)
  Sender: FDA-Public Use
  Company Number: US-PERRIGO-10US015692

PATIENT
  Age: 13 Year
  Sex: Female

DRUGS (2)
  1. ACETAMINOPHEN [Suspect]
     Indication: HEADACHE
     Dosage: 1000 MG, UNK
     Route: 065
  2. ACETAMINOPHEN [Suspect]
     Dosage: 2500 MG, SINGLE
     Route: 065

REACTIONS (1)
  - HEPATOTOXICITY [None]
